FAERS Safety Report 9516035 (Version 1)
Quarter: 2013Q3

REPORT INFORMATION
  Report Type: Spontaneous
  Country: US (occurrence: US)
  Receive Date: 20130911
  Receipt Date: 20130911
  Transmission Date: 20140515
  Serious: Yes (Hospitalization, Other)
  Sender: FDA-Public Use
  Company Number: US-009507513-1308USA015200

PATIENT
  Sex: Female

DRUGS (6)
  1. FOSAMAX [Suspect]
     Indication: OSTEOPENIA
     Dosage: 70 MG, UNK
     Route: 048
     Dates: start: 20060118, end: 20060318
  2. FOSAMAX [Suspect]
     Dosage: 70 MG, QW
     Route: 048
     Dates: start: 20081126
  3. ALENDRONATE SODIUM [Suspect]
     Dosage: 70 MG, UNK
  4. ZOCOR [Concomitant]
     Indication: BLOOD CHOLESTEROL INCREASED
     Dosage: 40 MG, HS
     Route: 048
     Dates: start: 200511, end: 200607
  5. PRAVACHOL [Concomitant]
     Indication: BLOOD CHOLESTEROL INCREASED
     Dosage: UNK
     Dates: start: 200402, end: 200502
  6. SIMVASTATIN [Concomitant]
     Indication: BLOOD CHOLESTEROL INCREASED
     Dosage: UNK
     Dates: start: 200703, end: 201103

REACTIONS (19)
  - Femur fracture [Unknown]
  - Femur fracture [Unknown]
  - Open reduction of fracture [Unknown]
  - Intramedullary rod insertion [Unknown]
  - Wound haematoma [Unknown]
  - Haematoma evacuation [Unknown]
  - Atypical femur fracture [Unknown]
  - Osteoporosis [Unknown]
  - Low turnover osteopathy [Unknown]
  - Hypertension [Unknown]
  - Rheumatoid arthritis [Unknown]
  - Connective tissue disorder [Unknown]
  - Fall [Unknown]
  - Fall [Unknown]
  - Osteoarthritis [Unknown]
  - Fibromyalgia [Unknown]
  - Cyst removal [Unknown]
  - Carpal tunnel decompression [Unknown]
  - Oedema peripheral [Unknown]
